FAERS Safety Report 4452074-X (Version None)
Quarter: 2004Q3

REPORT INFORMATION
  Report Type: 
  Country: None (occurrence: None)
  Receive Date: 20040915
  Receipt Date: 20040915
  Transmission Date: 20050211
  Serious: No
  Sender: FDA-Public Use
  Company Number: None

PATIENT
  Age: 39 Year
  Sex: Female
  Weight: 81.6475 kg

DRUGS (1)
  1. PROZAC [Suspect]
     Indication: MAJOR DEPRESSION
     Dosage: 20 MG
     Dates: start: 19870101

REACTIONS (4)
  - DEPRESSION [None]
  - IMPULSE-CONTROL DISORDER [None]
  - PARANOIA [None]
  - THERAPY NON-RESPONDER [None]
